FAERS Safety Report 11358889 (Version 5)
Quarter: 2016Q1

REPORT INFORMATION
  Report Type: Report from Study
  Country: JP (occurrence: JP)
  Receive Date: 20150807
  Receipt Date: 20160126
  Transmission Date: 20160525
  Serious: Yes (Death, Hospitalization, Other)
  Sender: FDA-Public Use
  Company Number: JP-EISAI MEDICAL RESEARCH-EC-2015-009418

PATIENT
  Age: 83 Year
  Sex: Female
  Weight: 50 kg

DRUGS (7)
  1. BLOPRESS [Concomitant]
     Active Substance: CANDESARTAN CILEXETIL
  2. LENVIMA [Suspect]
     Active Substance: LENVATINIB
     Indication: ANAPLASTIC THYROID CANCER
     Route: 048
     Dates: start: 20150714, end: 20150717
  3. LEVOTHYROXINE SODIUM HYDRATE [Concomitant]
  4. AMLODIPINE [Concomitant]
     Active Substance: AMLODIPINE BESYLATE
  5. CALONAL [Concomitant]
     Active Substance: ACETAMINOPHEN
  6. LENVIMA [Suspect]
     Active Substance: LENVATINIB
     Route: 048
     Dates: start: 20150722, end: 20150726
  7. UREPEARL [Concomitant]
     Active Substance: UREA

REACTIONS (3)
  - Decreased appetite [Not Recovered/Not Resolved]
  - Malignant neoplasm progression [Fatal]
  - Tracheal fistula [Not Recovered/Not Resolved]

NARRATIVE: CASE EVENT DATE: 20150717
